FAERS Safety Report 17974416 (Version 1)
Quarter: 2020Q3

REPORT INFORMATION
  Report Type: Spontaneous
  Country: US (occurrence: US)
  Receive Date: 20200702
  Receipt Date: 20200702
  Transmission Date: 20201103
  Serious: No
  Sender: FDA-Public Use
  Company Number: US-NATCO PHARMA-2020NAT00019

PATIENT
  Sex: Female

DRUGS (1)
  1. RIZATRIPTAN. [Suspect]
     Active Substance: RIZATRIPTAN
     Indication: MIGRAINE
     Route: 048

REACTIONS (4)
  - Product taste abnormal [Unknown]
  - Product solubility abnormal [Unknown]
  - Confusional state [Recovered/Resolved]
  - Product odour abnormal [Unknown]
